FAERS Safety Report 21989052 (Version 3)
Quarter: 2024Q1

REPORT INFORMATION
  Report Type: Spontaneous
  Country: US (occurrence: US)
  Receive Date: 20230214
  Receipt Date: 20240325
  Transmission Date: 20240410
  Serious: No
  Sender: FDA-Public Use
  Company Number: US-BoehringerIngelheim-2023-BI-218686

PATIENT
  Age: 66 Year
  Sex: Female

DRUGS (1)
  1. JARDIANCE [Suspect]
     Active Substance: EMPAGLIFLOZIN
     Indication: Diabetes mellitus
     Route: 048
     Dates: start: 20230414

REACTIONS (4)
  - Visual impairment [Not Recovered/Not Resolved]
  - Hypoacusis [Unknown]
  - Brain fog [Unknown]
  - Memory impairment [Unknown]

NARRATIVE: CASE EVENT DATE: 20230726
